FAERS Safety Report 14379572 (Version 1)
Quarter: 2018Q1

REPORT INFORMATION
  Report Type: Spontaneous
  Country: US (occurrence: US)
  Receive Date: 20180112
  Receipt Date: 20180112
  Transmission Date: 20180509
  Serious: Yes (Other)
  Sender: FDA-Public Use
  Company Number: US-APOTEX-2018AP005454

PATIENT
  Age: 53 Year
  Sex: Male

DRUGS (2)
  1. KETOCONAZOLE TABLETS USP [Suspect]
     Active Substance: KETOCONAZOLE
     Indication: ENZYME INHIBITION
     Dosage: UNK
     Route: 065
  2. HYDROCHLOROTHIAZIDE. [Suspect]
     Active Substance: HYDROCHLOROTHIAZIDE
     Indication: PRODUCT USED FOR UNKNOWN INDICATION
     Dosage: UNK
     Route: 065

REACTIONS (6)
  - Nephrolithiasis [Unknown]
  - Hypercalcaemia [Recovered/Resolved]
  - Blood 1,25-dihydroxycholecalciferol increased [Recovered/Resolved]
  - Fatigue [Unknown]
  - Blood testosterone decreased [Unknown]
  - Hypercalciuria [Recovered/Resolved]
